FAERS Safety Report 10358595 (Version 3)
Quarter: 2014Q3

REPORT INFORMATION
  Report Type: Spontaneous
  Country: JP (occurrence: JP)
  Receive Date: 20140803
  Receipt Date: 20140901
  Transmission Date: 20150326
  Serious: Yes (Hospitalization, Other)
  Sender: FDA-Public Use
  Company Number: PHHY2014JP094448

PATIENT
  Age: 72 Year
  Sex: Female

DRUGS (3)
  1. EXELON PATCH [Suspect]
     Active Substance: RIVASTIGMINE
     Indication: DEMENTIA ALZHEIMER^S TYPE
     Dosage: 4.5 MG, PER 24 HOURS
     Route: 062
     Dates: start: 20140426
  2. EXELON PATCH [Suspect]
     Active Substance: RIVASTIGMINE
     Dosage: 9 MG, PER 24 HOURS
     Route: 062
     Dates: start: 20140527
  3. EXELON PATCH [Suspect]
     Active Substance: RIVASTIGMINE
     Dosage: 13.5 MG, PER 24 HOURS
     Route: 062
     Dates: start: 20140627

REACTIONS (3)
  - Restlessness [Recovered/Resolved]
  - Fracture [Unknown]
  - Fall [Recovered/Resolved]

NARRATIVE: CASE EVENT DATE: 20140627
